FAERS Safety Report 24436662 (Version 4)
Quarter: 2025Q1

REPORT INFORMATION
  Report Type: Report from Study
  Country: JP (occurrence: JP)
  Receive Date: 20241015
  Receipt Date: 20250321
  Transmission Date: 20250409
  Serious: Yes (Death)
  Sender: SHIONOGI
  Company Number: JP-shionogi-202400001306

PATIENT
  Age: 72 Year
  Sex: Male
  Weight: 71.1 kg

DRUGS (26)
  1. CEFIDEROCOL [Suspect]
     Active Substance: CEFIDEROCOL
     Indication: Gangrene
     Route: 041
     Dates: start: 20241005, end: 20241005
  2. CEFIDEROCOL [Suspect]
     Active Substance: CEFIDEROCOL
     Route: 041
     Dates: start: 20241006, end: 20241009
  3. MINOCYCLINE HYDROCHLORIDE [Concomitant]
     Active Substance: MINOCYCLINE HYDROCHLORIDE
     Indication: Product used for unknown indication
     Route: 065
     Dates: start: 20241007, end: 20241007
  4. MINOCYCLINE HYDROCHLORIDE [Concomitant]
     Active Substance: MINOCYCLINE HYDROCHLORIDE
     Route: 065
     Dates: start: 20241008, end: 20241008
  5. MINOCYCLINE HYDROCHLORIDE [Concomitant]
     Active Substance: MINOCYCLINE HYDROCHLORIDE
     Route: 065
     Dates: start: 20241009, end: 20241009
  6. MINOCYCLINE HYDROCHLORIDE [Concomitant]
     Active Substance: MINOCYCLINE HYDROCHLORIDE
     Route: 065
     Dates: start: 20241001, end: 20241006
  7. CEFAZOLIN SODIUM [Concomitant]
     Active Substance: CEFAZOLIN SODIUM
     Indication: Product used for unknown indication
     Route: 065
     Dates: start: 20241003, end: 20241009
  8. VANCOMYCIN HYDROCHLORIDE [Concomitant]
     Active Substance: VANCOMYCIN HYDROCHLORIDE
     Indication: Product used for unknown indication
     Route: 065
     Dates: start: 20241007, end: 20241007
  9. VANCOMYCIN HYDROCHLORIDE [Concomitant]
     Active Substance: VANCOMYCIN HYDROCHLORIDE
     Route: 065
     Dates: start: 20241009, end: 20241009
  10. VANCOMYCIN HYDROCHLORIDE [Concomitant]
     Active Substance: VANCOMYCIN HYDROCHLORIDE
     Route: 065
     Dates: start: 20241004, end: 20241004
  11. CALCIUM GLUCONATE\DEXTROSE\MAGNESIUM SULFATE\POTASSIUM ACETATE\POTASSI [Concomitant]
     Active Substance: CALCIUM GLUCONATE\DEXTROSE\MAGNESIUM SULFATE\POTASSIUM ACETATE\POTASSIUM PHOSPHATE, DIBASIC\ZINC SUL
     Indication: Product used for unknown indication
     Route: 065
     Dates: start: 20241003, end: 20241003
  12. AMINO ACIDS\ELECTROLYTES NOS [Concomitant]
     Active Substance: AMINO ACIDS\ELECTROLYTES NOS
     Indication: Product used for unknown indication
     Route: 065
     Dates: start: 20241003, end: 20241003
  13. CUPRIC SULFATE\FERRIC CHLORIDE\MANGANESE CHLORIDE\POTASSIUM IODIDE\ZIN [Concomitant]
     Active Substance: CUPRIC SULFATE\FERRIC CHLORIDE\MANGANESE CHLORIDE\POTASSIUM IODIDE\ZINC SULFATE
     Indication: Product used for unknown indication
     Route: 065
     Dates: start: 20241003, end: 20241003
  14. VITAMINS [Concomitant]
     Active Substance: VITAMINS
     Indication: Product used for unknown indication
     Route: 065
     Dates: start: 20241003, end: 20241003
  15. NOVOLIN R [Concomitant]
     Active Substance: INSULIN HUMAN
     Indication: Product used for unknown indication
     Route: 065
     Dates: start: 20241003, end: 20241003
  16. NOREPINEPHRINE BITARTRATE [Concomitant]
     Active Substance: NOREPINEPHRINE BITARTRATE
     Indication: Product used for unknown indication
     Route: 065
     Dates: start: 20241006, end: 20241007
  17. NOREPINEPHRINE BITARTRATE [Concomitant]
     Active Substance: NOREPINEPHRINE BITARTRATE
     Route: 065
     Dates: start: 20241008, end: 20241008
  18. NOREPINEPHRINE BITARTRATE [Concomitant]
     Active Substance: NOREPINEPHRINE BITARTRATE
     Route: 065
     Dates: start: 20241009, end: 20241009
  19. NOREPINEPHRINE BITARTRATE [Concomitant]
     Active Substance: NOREPINEPHRINE BITARTRATE
     Route: 065
     Dates: start: 20241004, end: 20241004
  20. SOLITA-T NO.1 [Concomitant]
     Indication: Product used for unknown indication
     Route: 065
     Dates: start: 20241005, end: 20241005
  21. SOLITA-T NO.1 [Concomitant]
     Route: 065
     Dates: start: 20241007, end: 20241007
  22. SOLITA-T NO.1 [Concomitant]
     Route: 065
     Dates: start: 20241008, end: 20241009
  23. SOLITA-T NO.1 [Concomitant]
     Route: 065
     Dates: start: 20241004, end: 20241004
  24. INSULIN GLARGINE [Concomitant]
     Active Substance: INSULIN GLARGINE
     Indication: Product used for unknown indication
     Route: 065
     Dates: start: 20241008, end: 20241008
  25. INSULIN GLARGINE [Concomitant]
     Active Substance: INSULIN GLARGINE
     Route: 065
     Dates: start: 20241009, end: 20241009
  26. INSULIN GLARGINE [Concomitant]
     Active Substance: INSULIN GLARGINE
     Route: 065
     Dates: start: 20241007, end: 20241007

REACTIONS (2)
  - Adverse reaction [Fatal]
  - Gangrene [Fatal]

NARRATIVE: CASE EVENT DATE: 20241006
